FAERS Safety Report 23531070 (Version 1)
Quarter: 2024Q1

REPORT INFORMATION
  Report Type: Spontaneous
  Country: US (occurrence: None)
  Receive Date: 20240215
  Receipt Date: 20240215
  Transmission Date: 20240409
  Serious: No
  Sender: FDA-Public Use
  Company Number: None

PATIENT
  Age: 72 Year
  Sex: Female

DRUGS (1)
  1. AMBRISENTAN [Suspect]
     Active Substance: AMBRISENTAN
     Indication: Pulmonary arterial hypertension
     Dosage: FREQUENCY : DAILY;?
     Route: 048
     Dates: start: 20150623

REACTIONS (4)
  - Infective pulmonary exacerbation of cystic fibrosis [None]
  - Gastrointestinal haemorrhage [None]
  - Weight decreased [None]
  - Jugular vein distension [None]

NARRATIVE: CASE EVENT DATE: 20240209
